FAERS Safety Report 12927813 (Version 1)
Quarter: 2016Q4

REPORT INFORMATION
  Report Type: Spontaneous
  Country: US (occurrence: US)
  Receive Date: 20161110
  Receipt Date: 20161110
  Transmission Date: 20170207
  Serious: Yes (Other)
  Sender: FDA-Public Use
  Company Number: None

PATIENT
  Age: 58 Year
  Sex: Female
  Weight: 75.82 kg

DRUGS (3)
  1. EFFEXOR [Suspect]
     Active Substance: VENLAFAXINE HYDROCHLORIDE
  2. ATIVAN [Suspect]
     Active Substance: LORAZEPAM
  3. DIAZEPAM. [Suspect]
     Active Substance: DIAZEPAM
     Indication: MIGRAINE
     Route: 048

REACTIONS (4)
  - Hypoaesthesia oral [None]
  - Hypoaesthesia [None]
  - Hallucination [None]
  - Dizziness [None]

NARRATIVE: CASE EVENT DATE: 201404
